FAERS Safety Report 10753304 (Version 1)
Quarter: 2015Q1

REPORT INFORMATION
  Report Type: Report from Study
  Country: US (occurrence: US)
  Receive Date: 20150130
  Receipt Date: 20150130
  Transmission Date: 20150721
  Serious: Yes (Death)
  Sender: FDA-Public Use
  Company Number: US-ACTELION-A-NJ2015-111839

PATIENT
  Age: 60 Year
  Sex: Male

DRUGS (11)
  1. MACITENTAN [Suspect]
     Active Substance: MACITENTAN
     Indication: COR PULMONALE CHRONIC
     Dosage: 10 MG, QD
     Route: 048
     Dates: start: 20140603
  2. ANDROGEL [Concomitant]
     Active Substance: TESTOSTERONE
  3. LAMOTRIGINE. [Concomitant]
     Active Substance: LAMOTRIGINE
  4. AMITRIPTYLINE [Concomitant]
     Active Substance: AMITRIPTYLINE
  5. PREDNISONE. [Concomitant]
     Active Substance: PREDNISONE
  6. VALIUM [Concomitant]
     Active Substance: DIAZEPAM
  7. WARFARIN [Concomitant]
     Active Substance: WARFARIN
  8. PLAQUENIL [Concomitant]
     Active Substance: HYDROXYCHLOROQUINE SULFATE
  9. FOSAMAX [Concomitant]
     Active Substance: ALENDRONATE SODIUM
  10. MS CONTIN [Concomitant]
     Active Substance: MORPHINE SULFATE
  11. GABAPENTIN. [Concomitant]
     Active Substance: GABAPENTIN

REACTIONS (1)
  - Death [Fatal]
